FAERS Safety Report 10255521 (Version 1)
Quarter: 2014Q2

REPORT INFORMATION
  Report Type: Spontaneous
  Country: US (occurrence: US)
  Receive Date: 20140624
  Receipt Date: 20140624
  Transmission Date: 20141212
  Serious: Yes (Hospitalization)
  Sender: FDA-Public Use
  Company Number: US-ACTAVIS-2014-13070

PATIENT
  Age: 29 Year
  Sex: Female
  Weight: 66 kg

DRUGS (1)
  1. GENERESS FE (WATSON LABORATORIES) [Suspect]
     Indication: ORAL CONTRACEPTION
     Dosage: 1 DF, DAILY
     Route: 048
     Dates: start: 201401, end: 20140316

REACTIONS (2)
  - Pneumothorax [Not Recovered/Not Resolved]
  - Pulmonary embolism [Not Recovered/Not Resolved]
